FAERS Safety Report 24712563 (Version 1)
Quarter: 2024Q4

REPORT INFORMATION
  Report Type: Spontaneous
  Country: US (occurrence: None)
  Receive Date: 20241209
  Receipt Date: 20241209
  Transmission Date: 20250115
  Serious: Yes (Hospitalization)
  Sender: Public
  Company Number: None

PATIENT
  Sex: Female
  Weight: 93.44 kg

DRUGS (7)
  1. WINREVAIR [Suspect]
     Active Substance: SOTATERCEPT-CSRK
     Indication: Pulmonary arterial hypertension
     Dosage: 1.3 ML EVERY 3 WEEKS SQ
     Route: 058
     Dates: start: 202410
  2. TORSEMIDE [Suspect]
     Active Substance: TORSEMIDE
  3. UPTRAVI [Concomitant]
     Active Substance: SELEXIPAG
  4. BUMETANIDE [Concomitant]
     Active Substance: BUMETANIDE
  5. AMBRISENTAN [Concomitant]
     Active Substance: AMBRISENTAN
  6. AUGMENTIN [Concomitant]
     Active Substance: AMOXICILLIN\CLAVULANATE POTASSIUM
  7. METFORMIN [Concomitant]
     Active Substance: METFORMIN HYDROCHLORIDE

REACTIONS (2)
  - Dyspnoea [None]
  - Pneumonia [None]
